FAERS Safety Report 23915561 (Version 2)
Quarter: 2024Q3

REPORT INFORMATION
  Report Type: Spontaneous
  Country: US (occurrence: US)
  Receive Date: 20240529
  Receipt Date: 20240723
  Transmission Date: 20241017
  Serious: No
  Sender: TORRENT
  Company Number: US-TORRENT-00013582

PATIENT
  Age: 43 Year
  Weight: 99 kg

DRUGS (1)
  1. TIOPRONIN [Suspect]
     Active Substance: TIOPRONIN
     Indication: Cystinuria
     Dosage: 300 MG 4 TIMES A DAY
     Route: 065
     Dates: start: 20240516

REACTIONS (1)
  - Off label use [Unknown]
